FAERS Safety Report 19988812 (Version 2)
Quarter: 2021Q4

REPORT INFORMATION
  Report Type: Spontaneous
  Country: JP (occurrence: JP)
  Receive Date: 20211024
  Receipt Date: 20211207
  Transmission Date: 20220303
  Serious: Yes (Hospitalization, Other)
  Sender: FDA-Public Use
  Company Number: JP-PFIZER INC-202101353882

PATIENT
  Age: 9 Decade
  Sex: Male
  Weight: 66.1 kg

DRUGS (12)
  1. ENBREL [Suspect]
     Active Substance: ETANERCEPT
     Indication: Rheumatoid arthritis
     Dosage: 50 MG, WEEKLY
     Route: 058
     Dates: start: 20191031, end: 20210930
  2. ISCOTIN [Concomitant]
     Active Substance: ISONIAZID
     Dosage: UNK
  3. AZULFIDINE [Concomitant]
     Active Substance: SULFASALAZINE
     Indication: Rheumatoid arthritis
     Dosage: 1000 MG, DAILY
     Route: 048
     Dates: start: 20190903
  4. BUCILLAMINE [Concomitant]
     Active Substance: BUCILLAMINE
     Indication: Rheumatoid arthritis
     Dosage: 200 MG, DAILY
     Route: 048
     Dates: start: 20210914
  5. METHOTREXATE [Concomitant]
     Active Substance: METHOTREXATE
     Indication: Rheumatoid arthritis
     Dosage: 3 MG, WEEKLY
     Route: 048
     Dates: start: 20191026, end: 20211007
  6. PREDNISOLONE [Concomitant]
     Active Substance: PREDNISOLONE
     Dosage: 2 MG, DAILY
     Route: 048
     Dates: start: 20190903
  7. ACTARIT [Concomitant]
     Active Substance: ACTARIT
     Indication: Rheumatoid arthritis
     Dosage: 300 MG, DAILY
     Route: 048
     Dates: start: 20201112
  8. ELDECALCITOL [Concomitant]
     Active Substance: ELDECALCITOL
     Indication: Osteoporosis
     Dosage: 0.75 UG, DAILY
     Route: 048
     Dates: start: 20210422
  9. LOXOPROFEN SODIUM [Concomitant]
     Active Substance: LOXOPROFEN SODIUM
     Indication: Analgesic therapy
     Dosage: 180 MG, DAILY
     Route: 048
     Dates: start: 20190903
  10. RABEPRAZOLE [Concomitant]
     Active Substance: RABEPRAZOLE
     Indication: Hyperchlorhydria
     Dosage: 10 MG, DAILY
     Route: 048
     Dates: start: 20190903
  11. SULFAMETHOXAZOLE\TRIMETHOPRIM [Concomitant]
     Active Substance: SULFAMETHOXAZOLE\TRIMETHOPRIM
     Indication: Infection prophylaxis
     Dosage: 1 DF, ON EVERY MON, WED, FRI.
     Route: 048
     Dates: start: 20191031
  12. TRAMCET [Concomitant]
     Active Substance: ACETAMINOPHEN\TRAMADOL
     Indication: Analgesic therapy
     Dosage: 2 DF, DAILY
     Route: 048
     Dates: start: 20190903

REACTIONS (4)
  - Organising pneumonia [Recovering/Resolving]
  - Spinal compression fracture [Unknown]
  - Productive cough [Not Recovered/Not Resolved]
  - Cough [Not Recovered/Not Resolved]

NARRATIVE: CASE EVENT DATE: 20211007
